FAERS Safety Report 7354891-5 (Version None)
Quarter: 2011Q1

REPORT INFORMATION
  Report Type: 
  Country: None (occurrence: None)
  Receive Date: 20110316
  Receipt Date: 20090316
  Transmission Date: 20110831
  Serious: Yes (Death, Other)
  Sender: FDA-Public Use
  Company Number: US-BAYER-200915523NA

PATIENT
  Sex: Female
  Weight: 6.8 kg

DRUGS (15)
  1. ANCEF [Concomitant]
     Dosage: 60 MG, UNK
     Route: 042
     Dates: start: 20000905
  2. CALCIUM CHLORIDE [Concomitant]
     Dosage: 100 MG, UNK
     Route: 042
     Dates: start: 20000905
  3. TRASYLOL [Suspect]
     Indication: TRANSPOSITION OF THE GREAT VESSELS
     Dosage: 34 /ML, UNK
     Route: 042
     Dates: end: 20000905
  4. APROTININ [Concomitant]
     Dosage: 35 ML, UNK
     Route: 042
     Dates: start: 20000905, end: 20000905
  5. PROTAMINE SULFATE [Concomitant]
     Dosage: 10 MG, UNK
     Route: 042
     Dates: start: 20000905
  6. LASIX [Concomitant]
     Dosage: 3 MG, UNK
     Route: 042
     Dates: start: 20000905
  7. TRASYLOL [Suspect]
     Indication: ATRIAL SEPTAL DEFECT REPAIR
  8. FENTANYL [Concomitant]
     Dosage: 75 MCG
     Route: 042
     Dates: start: 20000905
  9. HEPARIN [Concomitant]
     Dosage: 1000 UNITS
     Route: 042
     Dates: start: 20000905
  10. SODIUM BICARBONATE [Concomitant]
     Dosage: 6 MEQ, UNK
     Route: 042
     Dates: start: 20000905
  11. MILRINONE [Concomitant]
     Dosage: UNK
     Dates: start: 20000905
  12. VERSED [Concomitant]
  13. PROSTAGLANDIN E 1 [Concomitant]
     Dosage: 0.5 MCG/KG/MIN
     Route: 042
     Dates: start: 20000901
  14. TRASYLOL [Suspect]
     Indication: CARDIAC OPERATION
     Dosage: 1 ML, UNK
     Route: 042
     Dates: start: 20000905
  15. ALBUMIN (HUMAN) [Concomitant]
     Dosage: 20 ML, UNK
     Route: 042
     Dates: start: 20000905

REACTIONS (11)
  - PAIN [None]
  - DEPRESSION [None]
  - ANHEDONIA [None]
  - INJURY [None]
  - FEAR [None]
  - ANXIETY [None]
  - STRESS [None]
  - DEATH [None]
  - RENAL FAILURE [None]
  - CEREBROVASCULAR ACCIDENT [None]
  - ADVERSE EVENT [None]
